FAERS Safety Report 14607877 (Version 1)
Quarter: 2018Q1

REPORT INFORMATION
  Report Type: Report from Study
  Country: US (occurrence: US)
  Receive Date: 20180307
  Receipt Date: 20180307
  Transmission Date: 20180509
  Serious: Yes (Other)
  Sender: FDA-Public Use
  Company Number: US-PFIZER INC-2017378386

PATIENT
  Age: 45 Year
  Sex: Female

DRUGS (1)
  1. IBRANCE [Suspect]
     Active Substance: PALBOCICLIB
     Indication: BREAST CANCER METASTATIC
     Dosage: 125 MG, CYCLIC  (DAILY, 21 DAYS IN A ROW FOLLOWED BY 7 DAYS OFF)
     Route: 048
     Dates: start: 20170817

REACTIONS (6)
  - Fatigue [Recovering/Resolving]
  - Condition aggravated [Recovering/Resolving]
  - White blood cell count decreased [Not Recovered/Not Resolved]
  - Cough [Recovering/Resolving]
  - Pulmonary oedema [Recovering/Resolving]
  - Dyspnoea [Recovering/Resolving]

NARRATIVE: CASE EVENT DATE: 2017
